FAERS Safety Report 7339322-3 (Version None)
Quarter: 2011Q1

REPORT INFORMATION
  Report Type: 
  Country: None (occurrence: None)
  Receive Date: 20110308
  Receipt Date: 20110302
  Transmission Date: 20110831
  Serious: Yes (Other)
  Sender: FDA-Public Use
  Company Number: BR-PFIZER INC-2011045624

PATIENT
  Age: 67 Year
  Sex: Female
  Weight: 66 kg

DRUGS (2)
  1. XALATAN [Suspect]
     Indication: GLAUCOMA
     Dosage: 3 UG, 1X/DAY
     Route: 047
  2. AZOPT [Concomitant]
     Dosage: UNK

REACTIONS (5)
  - ASTHMA [None]
  - FOREIGN BODY SENSATION IN EYES [None]
  - INTRAOCULAR PRESSURE INCREASED [None]
  - FATIGUE [None]
  - EYE PAIN [None]
